FAERS Safety Report 19949754 (Version 1)
Quarter: 2021Q4

REPORT INFORMATION
  Report Type: Spontaneous
  Country: US (occurrence: US)
  Receive Date: 20211013
  Receipt Date: 20211013
  Transmission Date: 20220303
  Serious: Yes (Hospitalization, Other)
  Sender: FDA-Public Use
  Company Number: US-TARO-2021TAR01035

PATIENT
  Age: 65 Year
  Sex: Female

DRUGS (1)
  1. WARFARIN [Suspect]
     Active Substance: WARFARIN
     Indication: Deep vein thrombosis
     Dosage: UNK
     Route: 065

REACTIONS (4)
  - Anticoagulant-related nephropathy [Recovering/Resolving]
  - Hypercreatininaemia [Recovering/Resolving]
  - Acute kidney injury [Recovering/Resolving]
  - Anticoagulation drug level above therapeutic [Recovering/Resolving]
